FAERS Safety Report 4896754-0 (Version None)
Quarter: 2006Q1

REPORT INFORMATION
  Report Type: 
  Country: None (occurrence: None)
  Receive Date: 20060131
  Receipt Date: 20060124
  Transmission Date: 20060701
  Serious: Yes (Death, Other)
  Sender: FDA-Public Use
  Company Number: JP-GILEAD-2006-0009153

PATIENT
  Sex: Male

DRUGS (7)
  1. VIREAD [Suspect]
     Indication: HIV INFECTION
     Route: 048
     Dates: start: 20040902, end: 20041119
  2. EPIVIR [Suspect]
     Indication: HIV INFECTION
     Route: 048
     Dates: start: 20040902, end: 20041119
  3. STOCRIN [Suspect]
     Indication: HIV INFECTION
     Route: 048
     Dates: start: 20040902, end: 20041119
  4. CYCLOPHOSPHAMIDE [Concomitant]
     Indication: LYMPHOMA
     Dates: start: 20040813, end: 20041112
  5. DOXORUBICIN [Concomitant]
     Indication: LYMPHOMA
     Dates: start: 20040813, end: 20041112
  6. VINCRISTINE [Concomitant]
     Indication: LYMPHOMA
     Dates: start: 20040813, end: 20041112
  7. PREDNISONE [Concomitant]
     Indication: LYMPHOMA
     Dates: start: 20040813, end: 20041112

REACTIONS (3)
  - B-CELL LYMPHOMA [None]
  - PNEUMONIA STAPHYLOCOCCAL [None]
  - RASH [None]
